FAERS Safety Report 4667195-6 (Version None)
Quarter: 2005Q2

REPORT INFORMATION
  Report Type: 
  Country: None (occurrence: None)
  Receive Date: 20050520
  Receipt Date: 20040107
  Transmission Date: 20051028
  Serious: Yes (Hospitalization, Other)
  Sender: FDA-Public Use
  Company Number: US-BRISTOL-MYERS SQUIBB COMPANY-12475604

PATIENT
  Age: 79 Year
  Sex: Female
  Weight: 98 kg

DRUGS (1)
  1. SINEMET [Suspect]
     Indication: PARKINSON'S DISEASE
     Dosage: DOSE TAKEN AT NOON.
     Route: 048
     Dates: start: 20030124

REACTIONS (4)
  - DRUG EFFECT DECREASED [None]
  - GENERAL SYMPTOM [None]
  - MOVEMENT DISORDER [None]
  - TREMOR [None]
